FAERS Safety Report 21697938 (Version 1)
Quarter: 2022Q4

REPORT INFORMATION
  Report Type: Report from Study
  Country: US (occurrence: US)
  Receive Date: 20221208
  Receipt Date: 20221208
  Transmission Date: 20230113
  Serious: Yes (Hospitalization)
  Sender: FDA-Public Use
  Company Number: US-GBT-018409

PATIENT
  Age: 16 Year
  Sex: Female

DRUGS (5)
  1. OXBRYTA [Suspect]
     Active Substance: VOXELOTOR
     Indication: Sickle cell anaemia
     Route: 065
     Dates: start: 20200609
  2. folic acid (FOLVITE) [Concomitant]
     Indication: Sickle cell disease
     Route: 048
     Dates: start: 20110927
  3. VITAMIN D3 [Concomitant]
     Active Substance: CHOLECALCIFEROL
     Indication: Vitamin D deficiency
     Dosage: DOSAGE: 1000 U
     Route: 048
     Dates: start: 20140224
  4. HYDROXYUREA [Concomitant]
     Active Substance: HYDROXYUREA
     Route: 048
     Dates: start: 20191029
  5. Oxycodone IR (Roxicodone) [Concomitant]
     Indication: Sickle cell disease
     Dosage: TIME INTERVAL: AS NECESSARY
     Route: 048
     Dates: start: 20181016

REACTIONS (1)
  - Sickle cell anaemia with crisis [Recovered/Resolved]

NARRATIVE: CASE EVENT DATE: 20220508
